FAERS Safety Report 7583416-4 (Version None)
Quarter: 2011Q2

REPORT INFORMATION
  Report Type: 
  Country: None (occurrence: None)
  Receive Date: 20110628
  Receipt Date: 20110628
  Transmission Date: 20111010
  Serious: Yes (Hospitalization)
  Sender: FDA-Public Use
  Company Number: None

PATIENT
  Sex: Female
  Weight: 153.63 kg

DRUGS (2)
  1. CARBOPLATIN [Suspect]
     Dosage: 750 MG
  2. TAXOL [Suspect]
     Dosage: 270 MG

REACTIONS (3)
  - ANAEMIA [None]
  - DIZZINESS [None]
  - DYSPNOEA [None]
